FAERS Safety Report 16688440 (Version 1)
Quarter: 2019Q3

REPORT INFORMATION
  Report Type: Spontaneous
  Country: US (occurrence: US)
  Receive Date: 20190809
  Receipt Date: 20190809
  Transmission Date: 20191004
  Serious: No
  Sender: FDA-Public Use
  Company Number: US-BAYER-2019-148239

PATIENT
  Age: 43 Year
  Sex: Female
  Weight: 62 kg

DRUGS (1)
  1. MIRALAX [Suspect]
     Active Substance: POLYETHYLENE GLYCOL 3350
     Indication: GASTROINTESTINAL DISORDER
     Dosage: UNK(AS LABELLED DOSE)
     Route: 048
     Dates: start: 20190806, end: 20190808

REACTIONS (2)
  - Product taste abnormal [None]
  - Nausea [Recovered/Resolved]

NARRATIVE: CASE EVENT DATE: 20190806
